FAERS Safety Report 10039289 (Version 1)
Quarter: 2014Q1

REPORT INFORMATION
  Report Type: Spontaneous
  Country: US (occurrence: None)
  Receive Date: 20140318
  Receipt Date: 20140318
  Transmission Date: 20141002
  Serious: Yes (Other)
  Sender: FDA-Public Use
  Company Number: 2013CT000107

PATIENT
  Age: 55 Year
  Sex: Male

DRUGS (1)
  1. KORLYM [Suspect]
     Indication: PRODUCT USED FOR UNKNOWN INDICATION
     Dates: start: 20131109

REACTIONS (7)
  - Hangover [None]
  - Headache [None]
  - Fatigue [None]
  - Confusional state [None]
  - Nausea [None]
  - Anxiety [None]
  - Depressed mood [None]
